FAERS Safety Report 5939701-2 (Version None)
Quarter: 2008Q4

REPORT INFORMATION
  Report Type: 
  Country: None (occurrence: None)
  Receive Date: 20081030
  Receipt Date: 20081030
  Transmission Date: 20090506
  Serious: Yes (Other)
  Sender: FDA-Public Use
  Company Number: None

PATIENT
  Age: 25 Year
  Sex: Female
  Weight: 61.6892 kg

DRUGS (1)
  1. HALOPERIDOL [Suspect]
     Indication: SCHIZOPHRENIA
     Dosage: 5MG PO PRN
     Route: 048
     Dates: start: 20081015, end: 20081017

REACTIONS (3)
  - ILL-DEFINED DISORDER [None]
  - MUSCULOSKELETAL STIFFNESS [None]
  - TONGUE DISORDER [None]
